FAERS Safety Report 21387141 (Version 1)
Quarter: 2022Q3

REPORT INFORMATION
  Report Type: Spontaneous
  Country: US (occurrence: None)
  Receive Date: 20220927
  Receipt Date: 20220927
  Transmission Date: 20221027
  Serious: Yes (unspecified)
  Sender: FDA-Public Use
  Company Number: None

PATIENT
  Age: 37 Year
  Sex: Female
  Weight: 58.5 kg

DRUGS (1)
  1. COLGATE OPTIC WHITE CHARCOAL [Suspect]
     Active Substance: SODIUM FLUORIDE
     Route: 048

REACTIONS (4)
  - Oropharyngeal pain [None]
  - Oropharyngeal pain [None]
  - Dysphagia [None]
  - Chest pain [None]

NARRATIVE: CASE EVENT DATE: 20220824
